FAERS Safety Report 20365605 (Version 2)
Quarter: 2022Q1

REPORT INFORMATION
  Report Type: Spontaneous
  Country: JP (occurrence: JP)
  Receive Date: 20220122
  Receipt Date: 20220313
  Transmission Date: 20220423
  Serious: Yes (Death, Life-Threatening, Hospitalization, Other)
  Sender: FDA-Public Use
  Company Number: JP-AMGEN-JPNSP2022009549

PATIENT
  Age: 86 Year
  Sex: Male
  Weight: 44 kg

DRUGS (4)
  1. EVENITY [Suspect]
     Active Substance: ROMOSOZUMAB-AQQG
     Indication: Osteoporosis
     Dosage: 210 MILLIGRAM, QMO
     Route: 058
     Dates: start: 20191010, end: 20200908
  2. ALFACALCIDOL [Concomitant]
     Active Substance: ALFACALCIDOL
     Indication: Osteoporosis
     Dosage: UNK
     Dates: start: 201906
  3. MINODRONIC ACID [Concomitant]
     Active Substance: MINODRONIC ACID
     Dosage: UNK
     Dates: start: 202010, end: 20201014
  4. ELDECALCITOL [Concomitant]
     Active Substance: ELDECALCITOL
     Indication: Osteoporosis
     Dosage: UNK
     Dates: start: 201907, end: 20200908

REACTIONS (2)
  - Aortic dissection [Fatal]
  - Fall [Unknown]

NARRATIVE: CASE EVENT DATE: 20201013
